FAERS Safety Report 24293101 (Version 1)
Quarter: 2024Q3

REPORT INFORMATION
  Report Type: Spontaneous
  Country: US (occurrence: None)
  Receive Date: 20240906
  Receipt Date: 20240906
  Transmission Date: 20241017
  Serious: No
  Sender: DOMPE FARMACEUTICI
  Company Number: US-FARMAPROD-202308-202311-3501

PATIENT
  Age: 67 Year
  Sex: Female

DRUGS (9)
  1. OXERVATE [Suspect]
     Active Substance: CENEGERMIN-BKBJ
     Indication: Neurotrophic keratopathy
     Route: 047
     Dates: start: 20231120
  2. VENLAFAXINE HYDROCHLORIDE [Concomitant]
     Active Substance: VENLAFAXINE HYDROCHLORIDE
  3. VITAMINS [Concomitant]
     Active Substance: VITAMINS
  4. LATANOPROST [Concomitant]
     Active Substance: LATANOPROST
  5. LOTEPREDNOL ETABONATE [Concomitant]
     Active Substance: LOTEPREDNOL ETABONATE
  6. MOXIFLOXACIN [Concomitant]
     Active Substance: MOXIFLOXACIN
  7. COMBIGAN [Concomitant]
     Active Substance: BRIMONIDINE TARTRATE\TIMOLOL MALEATE
     Dosage: 0.2%-0.5%
  8. FLUOROMETHOLONE [Concomitant]
     Active Substance: FLUOROMETHOLONE
  9. VALACYCLOVIR [Concomitant]
     Active Substance: VALACYCLOVIR HYDROCHLORIDE

REACTIONS (5)
  - Eye pain [Unknown]
  - Ocular hyperaemia [Unknown]
  - Blindness [Unknown]
  - Eye discharge [Unknown]
  - Intraocular pressure decreased [Unknown]

NARRATIVE: CASE EVENT DATE: 20231121
